FAERS Safety Report 8502772 (Version 9)
Quarter: 2014Q2

REPORT INFORMATION
  Report Type: Report from Study
  Country: CA (occurrence: CA)
  Receive Date: 20120410
  Receipt Date: 20140605
  Transmission Date: 20141212
  Serious: Yes (Hospitalization, Other)
  Sender: FDA-Public Use
  Company Number: CA-ROCHE-1054828

PATIENT
  Age: 46 Year
  Sex: Female
  Weight: 86.2 kg

DRUGS (38)
  1. RITUXAN [Suspect]
     Indication: VASCULITIS
     Route: 042
     Dates: start: 20100827, end: 20110623
  2. RITUXAN [Suspect]
     Indication: GRANULOMATOSIS WITH POLYANGIITIS
     Dosage: ONCE, MAINTENANCE, LAST DOSE PRIOR TO SAE:13/JUL/2013
     Route: 042
     Dates: start: 20110623
  3. DIAZEPAM [Concomitant]
  4. DIPHENHYDRAMINE HCL [Concomitant]
     Indication: PREMEDICATION
     Route: 048
     Dates: start: 20110623, end: 20110623
  5. DIPHENHYDRAMINE HCL [Concomitant]
     Route: 048
     Dates: start: 20100827
  6. ACETAMINOPHEN [Concomitant]
     Indication: PREMEDICATION
     Route: 048
     Dates: start: 20100827
  7. ACETAMINOPHEN [Concomitant]
     Route: 048
     Dates: start: 20110623, end: 20110623
  8. ONDANSETRON [Concomitant]
     Indication: PREMEDICATION
     Route: 042
     Dates: start: 20110623, end: 20110623
  9. BACTRIM DS [Concomitant]
     Dosage: TAKEN WITH CYCLOPHOSPHAMIDE
     Route: 065
     Dates: start: 2007
  10. FOSAVANCE [Concomitant]
  11. PREVACID [Concomitant]
     Indication: GASTROOESOPHAGEAL REFLUX DISEASE
  12. SALBUTAMOL [Concomitant]
     Route: 055
  13. SPIRIVA [Concomitant]
     Route: 055
  14. ADVAIR [Concomitant]
     Route: 055
  15. VENTOLIN [Concomitant]
     Route: 055
  16. VALPROIC ACID [Concomitant]
  17. CELEXA (CANADA) [Concomitant]
  18. XANAX [Concomitant]
  19. TEMAZEPAM [Concomitant]
  20. OXYCONTIN [Concomitant]
  21. SENOKOT [Concomitant]
  22. CALCIUM CITRATE WITH VITAMIN D3 [Concomitant]
  23. IBUPROFEN [Concomitant]
  24. RHINARIS (CANADA) [Concomitant]
  25. NEILMED SINUS RINSE [Concomitant]
  26. SLEEP-EZE (CANADA) [Concomitant]
  27. GRAVOL [Concomitant]
  28. NYSTATIN [Concomitant]
  29. LASIX [Concomitant]
  30. BENADRYL (CANADA) [Concomitant]
  31. HYDROMORPHONE [Concomitant]
  32. PYRIDOSTIGMINE [Concomitant]
  33. TOBRAMYCIN [Concomitant]
     Route: 065
  34. LORAZEPAM [Concomitant]
  35. BISACODYL [Concomitant]
  36. PREDNISONE [Concomitant]
  37. CYCLOPHOSPHAMIDE [Concomitant]
  38. LACTULOSE [Concomitant]
     Route: 065

REACTIONS (9)
  - Pneumonia aspiration [Unknown]
  - Localised infection [Unknown]
  - Oedema [Not Recovered/Not Resolved]
  - Blood pressure increased [Not Recovered/Not Resolved]
  - Crepitations [Not Recovered/Not Resolved]
  - Dyspnoea [Not Recovered/Not Resolved]
  - Oxygen saturation decreased [Not Recovered/Not Resolved]
  - Granulomatosis with polyangiitis [Not Recovered/Not Resolved]
  - Immunodeficiency [Unknown]
